FAERS Safety Report 11648949 (Version 2)
Quarter: 2015Q4

REPORT INFORMATION
  Report Type: Report from Study
  Country: US (occurrence: US)
  Receive Date: 20151021
  Receipt Date: 20151102
  Transmission Date: 20160304
  Serious: Yes (Other)
  Sender: FDA-Public Use
  Company Number: US-AMGEN-USASP2015108349

PATIENT
  Age: 46 Year
  Sex: Female

DRUGS (1)
  1. ENBREL [Suspect]
     Active Substance: ETANERCEPT
     Indication: PSORIATIC ARTHROPATHY
     Dosage: 50 MG, QWK
     Route: 065
     Dates: start: 20150818

REACTIONS (13)
  - Fungal infection [Unknown]
  - Injection site warmth [Unknown]
  - Urinary tract infection fungal [Unknown]
  - Vulvovaginal mycotic infection [Unknown]
  - Injection site pain [Unknown]
  - Muscular weakness [Unknown]
  - Urinary tract infection bacterial [Unknown]
  - Urine abnormality [Unknown]
  - Vaginitis bacterial [Unknown]
  - Arthralgia [Unknown]
  - Injection site urticaria [Unknown]
  - Injection site erythema [Unknown]
  - Pain [Unknown]

NARRATIVE: CASE EVENT DATE: 2015
